FAERS Safety Report 8506441 (Version 10)
Quarter: 2013Q1

REPORT INFORMATION
  Report Type: Spontaneous
  Country: US (occurrence: US)
  Receive Date: 20120412
  Receipt Date: 20130307
  Transmission Date: 20140127
  Serious: No
  Sender: FDA-Public Use
  Company Number: US-PFIZER INC-2012087284

PATIENT
  Age: 84 Year
  Sex: Male
  Weight: 77.1 kg

DRUGS (9)
  1. TOVIAZ [Suspect]
     Indication: URINARY INCONTINENCE
     Dosage: 8 MG, 1X/DAY
     Dates: start: 201112
  2. TOVIAZ [Suspect]
     Indication: HYPERTONIC BLADDER
     Dosage: 4 MG, 1X/DAY
     Dates: start: 20120317, end: 20120328
  3. TOVIAZ [Suspect]
     Dosage: 8 MG, 1X/DAY
     Dates: start: 20120329
  4. TOVIAZ [Suspect]
     Dosage: UNK
  5. TOVIAZ [Suspect]
     Dosage: UNK
  6. TOVIAZ [Suspect]
     Dosage: 4 MG, UNK
  7. TERAZOSIN [Concomitant]
     Indication: HYPERTENSION
     Dosage: 5 MG, DAILY
  8. HYDROCHLOROTHIAZIDE WITH TRIAMTERENE [Concomitant]
     Indication: HYPERTENSION
     Dosage: 37.5 MG, DAILY
  9. DIOVAN (VALSARTAN) [Concomitant]
     Indication: HYPERTENSION
     Dosage: 320 MG, DAILY

REACTIONS (3)
  - Drug ineffective [Recovered/Resolved]
  - Urinary incontinence [Recovered/Resolved]
  - Drug dispensing error [Unknown]
